FAERS Safety Report 7563088-5 (Version None)
Quarter: 2011Q2

REPORT INFORMATION
  Report Type: 
  Country: None (occurrence: None)
  Receive Date: 20110621
  Receipt Date: 20110621
  Transmission Date: 20111010
  Serious: Yes (Other)
  Sender: FDA-Public Use
  Company Number: None

PATIENT
  Age: 31 Year
  Sex: Female
  Weight: 63.5036 kg

DRUGS (1)
  1. LEXAPRO [Suspect]
     Indication: DEPRESSION
     Dosage: 10MG DAILY PO
     Route: 048
     Dates: start: 20080901, end: 20110617

REACTIONS (4)
  - FEELING ABNORMAL [None]
  - ABORTION SPONTANEOUS [None]
  - PARAESTHESIA [None]
  - DRUG EXPOSURE DURING PREGNANCY [None]
